FAERS Safety Report 6663952-5 (Version None)
Quarter: 2010Q2

REPORT INFORMATION
  Report Type: 
  Country: None (occurrence: None)
  Receive Date: 20100401
  Receipt Date: 20100329
  Transmission Date: 20101027
  Serious: Yes (Death)
  Sender: FDA-Public Use
  Company Number: JP-ASTRAZENECA-2010SE13835

PATIENT
  Sex: Male
  Weight: 66 kg

DRUGS (2)
  1. CARBOCAIN [Suspect]
     Dosage: 10CC X 5 AMPULES, AT 3ML/HOUR
     Route: 041
  2. SEISHOKU [Suspect]
     Dosage: 100 ML EVERY DAY, CARBOCAINE WAS MIXED WITH SALINE SOLUTION AND ADMINISTERED
     Route: 041

REACTIONS (2)
  - DEATH [None]
  - INCORRECT ROUTE OF DRUG ADMINISTRATION [None]
